FAERS Safety Report 13732441 (Version 3)
Quarter: 2020Q4

REPORT INFORMATION
  Report Type: Spontaneous
  Country: US (occurrence: US)
  Receive Date: 20170707
  Receipt Date: 20201002
  Transmission Date: 20210113
  Serious: No
  Sender: FDA-Public Use
  Company Number: US-SA-2017SA112848

PATIENT

DRUGS (3)
  1. DUPIXENT [Suspect]
     Active Substance: DUPILUMAB
     Indication: DERMATITIS ATOPIC
     Dosage: 600 MG,1X
     Route: 065
     Dates: start: 20170616, end: 20170616
  2. DUPIXENT [Suspect]
     Active Substance: DUPILUMAB
     Dosage: 300 MG, QOW
     Route: 058
     Dates: start: 2019
  3. DUPIXENT [Suspect]
     Active Substance: DUPILUMAB
     Dosage: 300 MG, QOW
     Route: 058
     Dates: start: 201709

REACTIONS (7)
  - Abdominal pain upper [Unknown]
  - Skin infection [Recovering/Resolving]
  - Dry skin [Unknown]
  - Pruritus [Unknown]
  - Eye pruritus [Unknown]
  - Product dose omission issue [Unknown]
  - Nausea [Unknown]

NARRATIVE: CASE EVENT DATE: 20170617
